FAERS Safety Report 8078523-6 (Version None)
Quarter: 2012Q1

REPORT INFORMATION
  Report Type: 
  Country: None (occurrence: None)
  Receive Date: 20120127
  Receipt Date: 20110311
  Transmission Date: 20120608
  Serious: Yes (Other)
  Sender: FDA-Public Use
  Company Number: PR-ABBOTT-11P-131-0708726-00

PATIENT
  Sex: Male
  Weight: 90.8 kg

DRUGS (4)
  1. HUMIRA [Suspect]
     Indication: ANKYLOSING SPONDYLITIS
     Route: 058
     Dates: start: 20080101, end: 20110201
  2. METHOTREXATE [Concomitant]
     Indication: ANKYLOSING SPONDYLITIS
     Route: 058
  3. FOLIC ACID [Concomitant]
     Indication: VITAMIN SUPPLEMENTATION
  4. CLARITIN [Concomitant]
     Indication: SINUSITIS
     Route: 048

REACTIONS (8)
  - DIZZINESS [None]
  - RASH GENERALISED [None]
  - SWELLING FACE [None]
  - SYNCOPE [None]
  - OEDEMA [None]
  - WHITE BLOOD CELL COUNT INCREASED [None]
  - HEADACHE [None]
  - BLOOD GLUCOSE INCREASED [None]
